FAERS Safety Report 22660793 (Version 1)
Quarter: 2023Q2

REPORT INFORMATION
  Report Type: Spontaneous
  Country: IT (occurrence: IT)
  Receive Date: 20230630
  Receipt Date: 20230630
  Transmission Date: 20230722
  Serious: No
  Sender: FDA-Public Use
  Company Number: IT-JAZZ PHARMACEUTICALS-2023-IT-006274

PATIENT
  Age: 11 Year
  Sex: Male

DRUGS (4)
  1. EPIDIOLEX [Suspect]
     Active Substance: CANNABIDIOL
     Indication: Epilepsy
     Dosage: 9.6 MILLIGRAM/KILOGRAM
  2. METHSUXIMIDE [Concomitant]
     Active Substance: METHSUXIMIDE
  3. ZONISAMIDE [Concomitant]
     Active Substance: ZONISAMIDE
  4. CLOBAZAM [Concomitant]
     Active Substance: CLOBAZAM

REACTIONS (2)
  - Diarrhoea [Unknown]
  - Off label use [Unknown]
